FAERS Safety Report 17216935 (Version 2)
Quarter: 2020Q1

REPORT INFORMATION
  Report Type: Spontaneous
  Country: US (occurrence: US)
  Receive Date: 20191231
  Receipt Date: 20200114
  Transmission Date: 20200409
  Serious: Yes (Hospitalization, Other)
  Sender: FDA-Public Use
  Company Number: US-APOTEX-2019AP026709

PATIENT
  Age: 18 Year
  Sex: Female

DRUGS (20)
  1. BLEOMYCIN [Suspect]
     Active Substance: BLEOMYCIN SULFATE
     Indication: HODGKIN^S DISEASE NODULAR SCLEROSIS RECURRENT
     Dosage: UNK, CYCLICAL (2 CYCLES)
     Route: 065
  2. DOXORUBICIN [Concomitant]
     Active Substance: DOXORUBICIN
     Indication: HODGKIN^S DISEASE NODULAR SCLEROSIS RECURRENT
     Dosage: UNK, CYCLICAL (2 CYCLES)
     Route: 065
  3. GEMCITABINE. [Suspect]
     Active Substance: GEMCITABINE
     Indication: CHEMOTHERAPY
     Dosage: 1000 MG/M2, QD (DAY 8)
     Route: 042
     Dates: start: 20140129
  4. BRENTUXIMAB VEDOTIN RECOMBINANT [Suspect]
     Active Substance: BRENTUXIMAB VEDOTIN
     Indication: HODGKIN^S DISEASE NODULAR SCLEROSIS RECURRENT
     Dosage: UNK, CYCLICAL
     Route: 065
  5. DOXORUBICIN [Concomitant]
     Active Substance: DOXORUBICIN
     Indication: CHEMOTHERAPY
     Dosage: UNK, CYCLICAL (3 CYCLES)
     Route: 065
  6. GEMCITABINE. [Suspect]
     Active Substance: GEMCITABINE
     Dosage: 1000 MG/M2, QD (DAY 8)
     Route: 042
     Dates: start: 20140219
  7. BRENTUXIMAB VEDOTIN RECOMBINANT [Suspect]
     Active Substance: BRENTUXIMAB VEDOTIN
     Indication: CHEMOTHERAPY
  8. VINCRISTINE [Concomitant]
     Active Substance: VINCRISTINE
     Indication: HODGKIN^S DISEASE NODULAR SCLEROSIS RECURRENT
     Dosage: UNK, CYCLICAL (2 CYCLES)
     Route: 065
  9. PREDNISONE. [Concomitant]
     Active Substance: PREDNISONE
     Indication: CHEMOTHERAPY
     Dosage: UNK, CYCLICAL (3 CYCLES)
     Route: 065
  10. CYCLOPHOSPHAMIDE. [Concomitant]
     Active Substance: CYCLOPHOSPHAMIDE
     Indication: CHEMOTHERAPY
     Dosage: UNK, CYCLICAL (3 CYCLES)
     Route: 065
  11. VINCRISTINE [Concomitant]
     Active Substance: VINCRISTINE
     Indication: CHEMOTHERAPY
     Dosage: UNK, CYCLICAL (3 CYCLES)
     Route: 065
  12. ETOPOSIDE. [Concomitant]
     Active Substance: ETOPOSIDE
     Indication: HODGKIN^S DISEASE NODULAR SCLEROSIS RECURRENT
     Dosage: UNK, CYCLICAL (2 CYCLES)
     Route: 065
  13. ETOPOSIDE. [Concomitant]
     Active Substance: ETOPOSIDE
     Indication: CHEMOTHERAPY
     Dosage: UNK, CYCLICAL (3 CYCLES)
     Route: 065
  14. PROCARBAZINE                       /00091702/ [Concomitant]
     Active Substance: PROCARBAZINE
     Indication: HODGKIN^S DISEASE NODULAR SCLEROSIS RECURRENT
     Dosage: UNK CYCLICAL (3 CYCLES)
     Route: 065
  15. PROCARBAZINE                       /00091702/ [Concomitant]
     Active Substance: PROCARBAZINE
     Indication: CHEMOTHERAPY
  16. GEMCITABINE. [Suspect]
     Active Substance: GEMCITABINE
     Indication: HODGKIN^S DISEASE NODULAR SCLEROSIS RECURRENT
     Dosage: 1000 MG/M2, QD (DAY 1)
     Route: 042
     Dates: start: 20140122
  17. CYCLOPHOSPHAMIDE. [Concomitant]
     Active Substance: CYCLOPHOSPHAMIDE
     Indication: HODGKIN^S DISEASE NODULAR SCLEROSIS RECURRENT
     Dosage: UNK, CYCLICAL (2 CYCLES)
     Route: 065
  18. GEMCITABINE. [Suspect]
     Active Substance: GEMCITABINE
     Dosage: 1000 MG/M2, QD (DAY 1)
     Route: 042
     Dates: start: 20140212
  19. BLEOMYCIN [Suspect]
     Active Substance: BLEOMYCIN SULFATE
     Indication: CHEMOTHERAPY
     Dosage: UNK, CYCLICAL (3 CYCLES)
     Route: 065
  20. PREDNISONE. [Concomitant]
     Active Substance: PREDNISONE
     Indication: HODGKIN^S DISEASE NODULAR SCLEROSIS RECURRENT
     Dosage: UNK, CYCLICAL (2 CYCLES)
     Route: 065

REACTIONS (2)
  - Mycobacterium avium complex infection [Recovered/Resolved]
  - Restrictive pulmonary disease [Recovering/Resolving]

NARRATIVE: CASE EVENT DATE: 2014
